FAERS Safety Report 7897995-0 (Version None)
Quarter: 2011Q4

REPORT INFORMATION
  Report Type: 
  Country: None (occurrence: None)
  Receive Date: 20111107
  Receipt Date: 20111107
  Transmission Date: 20120403
  Serious: Yes (Other)
  Sender: FDA-Public Use
  Company Number: None

PATIENT
  Age: 30 Year
  Sex: Female
  Weight: 80.739 kg

DRUGS (6)
  1. CIPROFLOXACIN [Concomitant]
  2. HUMIRA [Suspect]
     Indication: CROHN'S DISEASE
     Dosage: 40 MG
     Route: 058
     Dates: start: 20101015, end: 20111030
  3. AUGMENTIN [Concomitant]
     Route: 048
  4. PREDNISONE [Concomitant]
     Route: 048
  5. CAMRESE [Concomitant]
  6. FLONASE [Concomitant]
     Route: 045

REACTIONS (11)
  - HIGH DENSITY LIPOPROTEIN DECREASED [None]
  - EAR INFECTION [None]
  - BACK PAIN [None]
  - ABDOMINAL PAIN [None]
  - LUPUS-LIKE SYNDROME [None]
  - GASTROINTESTINAL INFLAMMATION [None]
  - SINUSITIS [None]
  - LIPASE INCREASED [None]
  - LIVER FUNCTION TEST ABNORMAL [None]
  - ARTHRALGIA [None]
  - BLOOD TRIGLYCERIDES INCREASED [None]
